FAERS Safety Report 15343081 (Version 1)
Quarter: 2018Q3

REPORT INFORMATION
  Report Type: Spontaneous
  Country: US (occurrence: US)
  Receive Date: 20180903
  Receipt Date: 20180903
  Transmission Date: 20181010
  Serious: No
  Sender: FDA-Public Use
  Company Number: US-GLENMARK PHARMACEUTICALS-2018GMK036330

PATIENT

DRUGS (3)
  1. MOMETASONE FUROATE CREAM USP [Suspect]
     Active Substance: MOMETASONE FUROATE
     Indication: ERYTHEMA
     Dosage: UNK UNK, BID, AT NIGHT AND IN THE MORNING
     Route: 061
     Dates: start: 20180616, end: 20180623
  2. MOMETASONE FUROATE CREAM USP [Suspect]
     Active Substance: MOMETASONE FUROATE
     Indication: SKIN DISORDER
  3. SODIUM [Concomitant]
     Active Substance: SODIUM
     Indication: INFECTION
     Dosage: UNK
     Route: 061

REACTIONS (4)
  - Malaise [Recovered/Resolved]
  - Abdominal discomfort [Recovering/Resolving]
  - Feeling abnormal [Recovered/Resolved]
  - Sleep disorder due to general medical condition, insomnia type [Unknown]

NARRATIVE: CASE EVENT DATE: 20180624
